FAERS Safety Report 8461230-5 (Version None)
Quarter: 2012Q2

REPORT INFORMATION
  Report Type: 
  Country: None (occurrence: None)
  Receive Date: 20120619
  Receipt Date: 20120619
  Transmission Date: 20120825
  Serious: Yes (Other)
  Sender: FDA-Public Use
  Company Number: None

PATIENT
  Age: 2 Year
  Sex: Male

DRUGS (2)
  1. SINGULAIR [Suspect]
     Indication: ASTHMA
     Dosage: 4MG ONCE A DAY PO
     Route: 048
     Dates: start: 20120319, end: 20120611
  2. SINGULAIR [Suspect]
     Indication: RHINITIS ALLERGIC
     Dosage: 4MG ONCE A DAY PO
     Route: 048
     Dates: start: 20120319, end: 20120611

REACTIONS (2)
  - HALLUCINATION [None]
  - FEAR [None]
